FAERS Safety Report 11641505 (Version 2)
Quarter: 2015Q4

REPORT INFORMATION
  Report Type: Spontaneous
  Country: IL (occurrence: IL)
  Receive Date: 20151019
  Receipt Date: 20151106
  Transmission Date: 20160304
  Serious: Yes (Other)
  Sender: FDA-Public Use
  Company Number: IL-PFIZER INC-2015334968

PATIENT
  Sex: Female

DRUGS (1)
  1. ADVIL [Suspect]
     Active Substance: IBUPROFEN
     Indication: TOOTHACHE
     Dosage: UNK, AS NEEDED, EVERY 3-4 HOURS
     Route: 048

REACTIONS (3)
  - Acute leukaemia [Unknown]
  - Condition aggravated [Not Recovered/Not Resolved]
  - Renal injury [Not Recovered/Not Resolved]
